FAERS Safety Report 5011733-0 (Version None)
Quarter: 2006Q2

REPORT INFORMATION
  Report Type: 
  Country: None (occurrence: None)
  Receive Date: 20060523
  Receipt Date: 20060523
  Transmission Date: 20061013
  Serious: Yes (Hospitalization, Disabling, Other)
  Sender: FDA-Public Use
  Company Number: None

PATIENT
  Age: 63 Year
  Sex: Male

DRUGS (28)
  1. ULTANE [Suspect]
     Indication: RENAL FAILURE CHRONIC
     Dates: start: 20050206
  2. ULTANE [Suspect]
     Indication: RENAL FAILURE CHRONIC
     Dates: start: 20060215
  3. SEVOFLUANCE [Concomitant]
  4. FENTANYL [Concomitant]
  5. MIDAZOLAM HCL [Concomitant]
  6. NIMBEX [Concomitant]
  7. SUCCINYLCHOLINE [Concomitant]
  8. PROPOFOL [Concomitant]
  9. LIDOCAINE [Concomitant]
  10. KEFZOL [Concomitant]
  11. VASOPRESSIN [Concomitant]
  12. . [Concomitant]
  13. EPINEPHRINE [Concomitant]
  14. NOREPINEPHRINE [Concomitant]
  15. PHENYLEPHRINE [Concomitant]
  16. FENANYL [Concomitant]
  17. MIDAZOLAM HCL [Concomitant]
  18. NIMBEX [Concomitant]
  19. SUCCINYLCHOLINE [Concomitant]
  20. PROPOFOL [Concomitant]
  21. BUPIVOCAINE [Concomitant]
  22. VANCOMYCIN [Concomitant]
  23. VASOPRESSIN [Concomitant]
  24. EPINEPHRINE [Concomitant]
  25. NOREPINEPHRINE BITARTRATE [Concomitant]
  26. PHENYLEPHRINE [Concomitant]
  27. SODIUM BICARBONATE [Concomitant]
  28. CALCIUM CHLORIDE [Concomitant]

REACTIONS (4)
  - ANAESTHETIC COMPLICATION [None]
  - ANAPHYLACTIC SHOCK [None]
  - BLOOD PRESSURE DECREASED [None]
  - PULSE ABSENT [None]
